FAERS Safety Report 5104685-6 (Version None)
Quarter: 2006Q3

REPORT INFORMATION
  Report Type: 
  Country: None (occurrence: None)
  Receive Date: 20060912
  Receipt Date: 20060912
  Transmission Date: 20061208
  Serious: Yes (Hospitalization)
  Sender: FDA-Public Use
  Company Number: None

PATIENT
  Age: 59 Year
  Sex: Female
  Weight: 68.9467 kg

DRUGS (61)
  1. AVASTIN [Suspect]
     Indication: OVARIAN CANCER
     Dosage: 350 MG Q 14 DAYS 042
     Dates: start: 20060825
  2. AVASTIN [Suspect]
     Indication: RECURRENT CANCER
     Dosage: 350 MG Q 14 DAYS 042
     Dates: start: 20060825
  3. AVASTIN [Suspect]
     Indication: OVARIAN CANCER
     Dosage: 350 MG Q 14 DAYS 042
     Dates: start: 20060811
  4. AVASTIN [Suspect]
     Indication: RECURRENT CANCER
     Dosage: 350 MG Q 14 DAYS 042
     Dates: start: 20060811
  5. DOXIL [Suspect]
     Indication: OVARIAN CANCER
     Dosage: 70.0 MG Q 28 DAYS 042
     Dates: start: 20060714
  6. DOXIL [Suspect]
     Indication: RECURRENT CANCER
     Dosage: 70.0 MG Q 28 DAYS 042
     Dates: start: 20060714
  7. ABRAXANE [Suspect]
     Indication: OVARIAN CANCER
     Dosage: 117.0 MG Q D1, D8, D15 042
     Dates: start: 20060714
  8. ABRAXANE [Suspect]
     Indication: RECURRENT CANCER
     Dosage: 117.0 MG Q D1, D8, D15 042
     Dates: start: 20060714
  9. CARBOPLATIN [Suspect]
     Indication: OVARIAN CANCER
     Dosage: 340 MG Q 28 DAYS 042
     Dates: start: 20060714
  10. CARBOPLATIN [Suspect]
     Indication: RECURRENT CANCER
     Dosage: 340 MG Q 28 DAYS 042
     Dates: start: 20060714
  11. ALOXI [Concomitant]
  12. TAGAMET [Concomitant]
  13. ACETAMINOPHEN [Concomitant]
  14. ARANESP [Concomitant]
  15. . [Concomitant]
  16. CARBOPLATIN [Concomitant]
  17. NEULASTA [Concomitant]
  18. DECADRON [Concomitant]
  19. NEUPOGEN [Concomitant]
  20. ZOCOR [Concomitant]
  21. MULTIVITAMIN [Concomitant]
  22. LEVAQUIN [Concomitant]
  23. BENEFIBER [Concomitant]
  24. AMBIEN [Concomitant]
  25. ACETAMINOPHEN [Concomitant]
  26. PRILOSEC [Concomitant]
  27. VICODIN [Concomitant]
  28. ENOXAPARIN SODIUM [Concomitant]
  29. PANTOPRAZOLE SODIUM [Concomitant]
  30. LEVOFLOXACIN [Concomitant]
  31. ZOFRAN [Concomitant]
  32. HYDROMORPHONE HCL [Concomitant]
  33. ATIVAN [Concomitant]
  34. DULCOLAX [Concomitant]
  35. DEXTROSE [Concomitant]
  36. BLD GLUCOSE [Concomitant]
  37. HYPERAL AD CENTR [Concomitant]
  38. FAT EMULSION [Concomitant]
  39. MAGNESIUM SULFATE [Concomitant]
  40. CHLORESEPTIC SPRAY [Concomitant]
  41. ACETAMINOPHEN [Concomitant]
  42. TPN SUSPENSION [Concomitant]
  43. VICADIN [Concomitant]
  44. ALPRAZOLAM [Concomitant]
  45. COMPAZINE [Concomitant]
  46. PHENERGAN [Concomitant]
  47. REGLAN [Concomitant]
  48. DILAUDID [Concomitant]
  49. ACETAMINOPHEN [Concomitant]
  50. ACETAMINOPHEN [Concomitant]
  51. D5/0 45NACL [Concomitant]
  52. NALOXONE (NARCAN) [Concomitant]
  53. DIPHENHYDRAMINE HCL [Concomitant]
  54. REGLAN [Concomitant]
  55. ATIVAN [Concomitant]
  56. ZOLPIDEM (ATIVAN) [Concomitant]
  57. SODIUM CHLORIDE [Concomitant]
  58. PANTOPRAZOLE SODIUM [Concomitant]
  59. VICODEN [Concomitant]
  60. XANAX [Concomitant]
  61. HYDROMORPHINE [Concomitant]

REACTIONS (3)
  - ABDOMINAL PAIN [None]
  - MUSCLE SPASMS [None]
  - SENSATION OF PRESSURE [None]
